FAERS Safety Report 7416024-6 (Version None)
Quarter: 2011Q2

REPORT INFORMATION
  Report Type: 
  Country: None (occurrence: None)
  Receive Date: 20110414
  Receipt Date: 20110331
  Transmission Date: 20111010
  Serious: Yes (Hospitalization)
  Sender: FDA-Public Use
  Company Number: JP-CELGENEUS-087-21880-10122907

PATIENT
  Sex: Female
  Weight: 45.5 kg

DRUGS (5)
  1. REVLIMID [Suspect]
     Indication: MULTIPLE MYELOMA
     Dosage: 10 MILLIGRAM
     Route: 048
     Dates: start: 20101115, end: 20101118
  2. ASPIRIN [Concomitant]
     Indication: PROPHYLAXIS
     Dosage: 100 MILLIGRAM
     Route: 048
     Dates: start: 20101115, end: 20101125
  3. VELCADE [Concomitant]
     Route: 065
  4. LENADEX [Suspect]
     Indication: MULTIPLE MYELOMA
     Dosage: 16 MILLIGRAM
     Route: 048
     Dates: start: 20101115, end: 20101125
  5. REVLIMID [Suspect]
     Dosage: 5 MILLIGRAM
     Route: 048
     Dates: start: 20101118, end: 20101125

REACTIONS (2)
  - STEVENS-JOHNSON SYNDROME [None]
  - HEPATIC FUNCTION ABNORMAL [None]
